FAERS Safety Report 10139546 (Version 1)
Quarter: 2014Q2

REPORT INFORMATION
  Report Type: Spontaneous
  Country: IT (occurrence: IT)
  Receive Date: 20140429
  Receipt Date: 20140429
  Transmission Date: 20141212
  Serious: Yes (Life-Threatening, Hospitalization, Other)
  Sender: FDA-Public Use
  Company Number: IT-WATSON-2014-08355

PATIENT
  Age: 50 Year
  Sex: Male

DRUGS (2)
  1. KETOPROFEN (UNKNOWN) [Suspect]
     Indication: NECK PAIN
     Dosage: 200 MG, DAILY
     Route: 065
  2. MINIRIN /00361901/ [Interacting]
     Indication: DIABETES INSIPIDUS
     Dosage: 60 MCG, 4 TIMES A DAY
     Route: 060

REACTIONS (6)
  - Water intoxication [Recovered/Resolved]
  - Coma [Recovered/Resolved]
  - Potentiating drug interaction [Recovered/Resolved]
  - Generalised tonic-clonic seizure [Recovered/Resolved]
  - Lactic acidosis [Recovered/Resolved]
  - Rhabdomyolysis [Recovered/Resolved]
